FAERS Safety Report 25587559 (Version 3)
Quarter: 2025Q3

REPORT INFORMATION
  Report Type: Spontaneous
  Country: JP (occurrence: JP)
  Receive Date: 20250721
  Receipt Date: 20250903
  Transmission Date: 20251020
  Serious: Yes (Death, Other)
  Sender: JAZZ
  Company Number: JP-JAZZ PHARMACEUTICALS-2025-JP-017726

PATIENT
  Age: 55 Year
  Sex: Male

DRUGS (1)
  1. VYXEOS [Suspect]
     Active Substance: CYTARABINE\DAUNORUBICIN
     Indication: Acute myeloid leukaemia

REACTIONS (5)
  - Death [Fatal]
  - Clostridium difficile colitis [Unknown]
  - Febrile neutropenia [Unknown]
  - Enteritis infectious [Unknown]
  - Diverticulitis [Unknown]
